FAERS Safety Report 11438576 (Version 2)
Quarter: 2015Q3

REPORT INFORMATION
  Report Type: Spontaneous
  Country: BR (occurrence: BR)
  Receive Date: 20150901
  Receipt Date: 20150904
  Transmission Date: 20151125
  Serious: Yes (Hospitalization, Other)
  Sender: FDA-Public Use
  Company Number: BR-009507513-1403BRA007919

PATIENT
  Age: 34 Year
  Sex: Female
  Weight: 52 kg

DRUGS (3)
  1. NUVARING [Suspect]
     Active Substance: ETHINYL ESTRADIOL\ETONOGESTREL
     Indication: CONTRACEPTION
     Dosage: 1 RING EVERY 3 WEEKS AND 1 WEEK OF RING FREE INTERVAL
     Route: 067
     Dates: start: 20150825
  2. NUVARING [Suspect]
     Active Substance: ETHINYL ESTRADIOL\ETONOGESTREL
     Dosage: 3 WEEKS OF USE AND 1 WEEKS OF PAUSE
     Route: 067
     Dates: start: 20150718, end: 20150816
  3. NUVARING [Suspect]
     Active Substance: ETHINYL ESTRADIOL\ETONOGESTREL
     Dosage: 3 WEEKS OF USE AND 1 WEEKS OF PAUSE
     Route: 067
     Dates: start: 2013, end: 2013

REACTIONS (21)
  - Crying [Not Recovered/Not Resolved]
  - Confusional state [Not Recovered/Not Resolved]
  - Abdominal discomfort [Recovered/Resolved]
  - Headache [Recovered/Resolved]
  - Drug administration error [Unknown]
  - Pain [Recovered/Resolved]
  - Headache [Recovered/Resolved]
  - Incorrect product storage [Unknown]
  - Mood altered [Not Recovered/Not Resolved]
  - Nausea [Recovered/Resolved]
  - Premenstrual syndrome [Not Recovered/Not Resolved]
  - Drug administration error [Unknown]
  - Inappropriate schedule of drug administration [Unknown]
  - Bone graft [Recovered/Resolved]
  - Headache [Recovered/Resolved]
  - Nausea [Recovered/Resolved]
  - Pyrexia [Recovered/Resolved]
  - Incorrect drug administration duration [Unknown]
  - Vomiting [Recovered/Resolved]
  - Libido decreased [Not Recovered/Not Resolved]
  - Depressed mood [Not Recovered/Not Resolved]

NARRATIVE: CASE EVENT DATE: 2013
